FAERS Safety Report 5266196-7 (Version None)
Quarter: 2007Q1

REPORT INFORMATION
  Report Type: 
  Country: None (occurrence: None)
  Receive Date: 20070315
  Receipt Date: 20070305
  Transmission Date: 20070707
  Serious: Yes (Other)
  Sender: FDA-Public Use
  Company Number: 2007CG00141

PATIENT
  Age: 27427 Day
  Sex: Female

DRUGS (1)
  1. ARIMIDEX [Suspect]
     Indication: BREAST CANCER
     Route: 048
     Dates: start: 20060608, end: 20070201

REACTIONS (5)
  - ARTHRALGIA [None]
  - CATARACT [None]
  - FATIGUE [None]
  - SLEEP DISORDER [None]
  - VITREOUS DETACHMENT [None]
